FAERS Safety Report 4907496-7 (Version None)
Quarter: 2006Q1

REPORT INFORMATION
  Report Type: 
  Country: None (occurrence: None)
  Receive Date: 20060210
  Receipt Date: 20050412
  Transmission Date: 20060701
  Serious: Yes (Hospitalization, Disabling, Other)
  Sender: FDA-Public Use
  Company Number: US-MERCK-0504USA02048

PATIENT
  Age: 61 Year
  Sex: Female
  Weight: 110 kg

DRUGS (1)
  1. VIOXX [Suspect]
     Indication: ARTHRITIS
     Route: 048
     Dates: start: 20000926, end: 20030721

REACTIONS (5)
  - ISCHAEMIC STROKE [None]
  - MYOCARDIAL INFARCTION [None]
  - PAIN IN EXTREMITY [None]
  - PNEUMONIA [None]
  - RESPIRATORY FAILURE [None]
